FAERS Safety Report 14663133 (Version 1)
Quarter: 2018Q1

REPORT INFORMATION
  Report Type: Other
  Country: GB (occurrence: GB)
  Receive Date: 20180321
  Receipt Date: 20180321
  Transmission Date: 20180509
  Serious: Yes (Other)
  Sender: FDA-Public Use
  Company Number: GB-GLENMARK PHARMACEUTICALS-2018GMK033487

PATIENT

DRUGS (8)
  1. NEBIDO [Concomitant]
     Active Substance: TESTOSTERONE UNDECANOATE
     Indication: PRODUCT USED FOR UNKNOWN INDICATION
     Dosage: UNK
     Route: 065
  2. NAPROXEN SODIUM. [Suspect]
     Active Substance: NAPROXEN SODIUM
     Indication: PRODUCT USED FOR UNKNOWN INDICATION
     Dosage: UNK
     Route: 065
  3. STATIN                             /00084401/ [Concomitant]
     Active Substance: THIABENDAZOLE
     Indication: PRODUCT USED FOR UNKNOWN INDICATION
     Dosage: UNK
     Route: 065
  4. MORPHINE HYDROCHLORIDE [Concomitant]
     Active Substance: MORPHINE HYDROCHLORIDE
     Indication: PRODUCT USED FOR UNKNOWN INDICATION
     Dosage: UNK
     Route: 065
  5. KEPPRA [Suspect]
     Active Substance: LEVETIRACETAM
     Indication: TEMPORAL LOBE EPILEPSY
     Dosage: 500 MG BID PLUS ADDITIONAL 250 MG DOSE IN BETWEEN MIDDAY, 3X/DAY (TID) (3), OD
     Route: 065
     Dates: start: 2009
  6. GABAPENTIN. [Concomitant]
     Active Substance: GABAPENTIN
     Indication: PRODUCT USED FOR UNKNOWN INDICATION
     Dosage: UNK
     Route: 065
  7. OMEPRAZOLE. [Concomitant]
     Active Substance: OMEPRAZOLE
     Indication: PRODUCT USED FOR UNKNOWN INDICATION
     Dosage: UNK
     Route: 065
  8. SOLPADOL                           /00116401/ [Concomitant]
     Active Substance: ACETAMINOPHEN\CODEINE PHOSPHATE
     Indication: PRODUCT USED FOR UNKNOWN INDICATION
     Dosage: UNK
     Route: 065

REACTIONS (29)
  - Overweight [Unknown]
  - Mood swings [Unknown]
  - Body temperature abnormal [Unknown]
  - Blood testosterone decreased [Unknown]
  - Osteoarthritis [Unknown]
  - Pharyngitis [Unknown]
  - Memory impairment [Unknown]
  - Blood cholesterol increased [Unknown]
  - Dyslexia [Unknown]
  - Osteopenia [Unknown]
  - Visual impairment [Unknown]
  - Pruritus [Unknown]
  - Lethargy [Unknown]
  - Enlarged uvula [Unknown]
  - Ligament injury [Unknown]
  - Coordination abnormal [Unknown]
  - Postprandial hypoglycaemia [Unknown]
  - Musculoskeletal disorder [Unknown]
  - Gastric haemorrhage [Unknown]
  - Migraine [Unknown]
  - Sinusitis [Unknown]
  - Dry skin [Unknown]
  - Myalgia [Unknown]
  - Anxiety [Unknown]
  - Paraesthesia [Unknown]
  - Rash [Unknown]
  - Intentional product misuse [Unknown]
  - Palpitations [Unknown]
  - Fatigue [Unknown]
